FAERS Safety Report 23382679 (Version 3)
Quarter: 2024Q2

REPORT INFORMATION
  Report Type: Spontaneous
  Country: US (occurrence: US)
  Receive Date: 20240109
  Receipt Date: 20240619
  Transmission Date: 20240715
  Serious: Yes (Hospitalization, Other)
  Sender: FDA-Public Use
  Company Number: US-BRISTOL-MYERS SQUIBB COMPANY-2024-003218

PATIENT
  Age: 82 Year
  Sex: Female
  Weight: 165.67 kg

DRUGS (2)
  1. IDHIFA [Suspect]
     Active Substance: ENASIDENIB MESYLATE
     Indication: Acute myeloid leukaemia
     Route: 048
     Dates: start: 20200922
  2. IDHIFA [Suspect]
     Active Substance: ENASIDENIB MESYLATE
     Route: 048
     Dates: start: 20200922

REACTIONS (8)
  - Fall [Unknown]
  - Traumatic fracture [Unknown]
  - Pain [Unknown]
  - Depression [Unknown]
  - Dizziness [Unknown]
  - Balance disorder [Unknown]
  - Tremor [Unknown]
  - Visual impairment [Unknown]

NARRATIVE: CASE EVENT DATE: 20240101
